FAERS Safety Report 20704075 (Version 3)
Quarter: 2022Q2

REPORT INFORMATION
  Report Type: Report from Study
  Country: KR (occurrence: KR)
  Receive Date: 20220413
  Receipt Date: 20220502
  Transmission Date: 20220721
  Serious: Yes (Death, Other)
  Sender: FDA-Public Use
  Company Number: KR-CELLTRION INC.-2022KR004352

PATIENT

DRUGS (17)
  1. TRUXIMA [Suspect]
     Active Substance: RITUXIMAB-ABBS
     Indication: Waldenstrom^s macroglobulinaemia
     Dosage: 375 MG/M2, MONTHLY (TOTAL OF 555 MG) 500 MG STRENGT
     Route: 042
     Dates: start: 20220214, end: 20220314
  2. TRUXIMA [Suspect]
     Active Substance: RITUXIMAB-ABBS
     Dosage: 375 MG/M2, MONTHLY (TOTAL OF 555 MG) 100 MG STRENGTH
     Route: 042
     Dates: start: 20220214, end: 20220314
  3. PROPACETAMOL HYDROCHLORIDE [Concomitant]
     Active Substance: PROPACETAMOL HYDROCHLORIDE
     Dosage: 1 G QD IV
     Route: 042
     Dates: start: 20220403
  4. NORPIN [BUPRENORPHINE HYDROCHLORIDE] [Concomitant]
     Dosage: 40 MG QD
     Route: 042
     Dates: start: 20220403
  5. VEKLURY [Concomitant]
     Active Substance: REMDESIVIR
     Dosage: 200 MG QD
     Route: 042
     Dates: start: 20220403
  6. MUCOSTEN [Concomitant]
     Dosage: 600 MG BID
     Route: 042
     Dates: start: 20220403
  7. PIPERACILLIN SODIUM\TAZOBACTAM SODIUM [Concomitant]
     Active Substance: PIPERACILLIN SODIUM\TAZOBACTAM SODIUM
     Dosage: 4.5 G TID
     Route: 042
     Dates: start: 20220403
  8. DEXAMETHASONE [Concomitant]
     Active Substance: DEXAMETHASONE
     Dosage: 30 MG QD
     Route: 042
     Dates: start: 20220403
  9. ACETAMINOPHEN\TRAMADOL HYDROCHLORIDE [Concomitant]
     Active Substance: ACETAMINOPHEN\TRAMADOL HYDROCHLORIDE
     Indication: Antipyresis
     Dosage: 162.5 MG, PRN
     Route: 048
     Dates: start: 20220120, end: 20220412
  10. MAGNESIUM HYDROXIDE [Concomitant]
     Active Substance: MAGNESIUM HYDROXIDE
     Indication: Constipation
     Dosage: 500 MG, TID
     Route: 048
     Dates: start: 20220120, end: 20220412
  11. DIFLUCAN [Concomitant]
     Active Substance: FLUCONAZOLE
     Indication: Prophylaxis
     Dosage: 5 MG, QD (DRY SYR)
     Route: 048
     Dates: start: 20220214, end: 20220414
  12. OMAPONE PERI [Concomitant]
     Indication: Nutritional supplementation
     Dosage: 500 ML, PRN
     Route: 042
     Dates: start: 20220211, end: 20220413
  13. ACETAMINOPHEN [Concomitant]
     Active Substance: ACETAMINOPHEN
     Indication: Prophylaxis
     Dosage: 650 MG, QD
     Route: 048
     Dates: start: 20220214, end: 20220327
  14. RABIET [Concomitant]
     Indication: Prophylaxis
     Dosage: 10 MG, QD
     Route: 048
     Dates: start: 20220120, end: 20220328
  15. SULFAMETHOXAZOLE\TRIMETHOPRIM [Concomitant]
     Active Substance: SULFAMETHOXAZOLE\TRIMETHOPRIM
     Indication: Prophylaxis
     Dosage: 400 MG, BID
     Route: 048
     Dates: start: 20220217, end: 20220409
  16. PENIRAMIN [Concomitant]
     Indication: Prophylaxis
     Dosage: 4 MG, QD
     Route: 042
     Dates: start: 20220120, end: 20220414
  17. ZOYLEX [ACICLOVIR] [Concomitant]
     Indication: Prophylaxis
     Dosage: 400 MG, QD
     Route: 048
     Dates: start: 20220214, end: 20220414

REACTIONS (2)
  - Sepsis [Fatal]
  - Off label use [Unknown]

NARRATIVE: CASE EVENT DATE: 20220328
